FAERS Safety Report 25465555 (Version 2)
Quarter: 2025Q3

REPORT INFORMATION
  Report Type: Spontaneous
  Country: JP (occurrence: JP)
  Receive Date: 20250623
  Receipt Date: 20250708
  Transmission Date: 20251021
  Serious: Yes (Death)
  Sender: ROCHE
  Company Number: JP-CHUGAI-2025019710

PATIENT
  Age: 74 Year
  Sex: Male

DRUGS (3)
  1. CELLCEPT [Suspect]
     Active Substance: MYCOPHENOLATE MOFETIL
     Indication: Prophylaxis against transplant rejection
     Route: 050
  2. TACROLIMUS [Suspect]
     Active Substance: TACROLIMUS
     Indication: Prophylaxis against transplant rejection
     Route: 065
  3. METHYLPREDNISOLONE [Suspect]
     Active Substance: METHYLPREDNISOLONE
     Indication: Prophylaxis against transplant rejection
     Route: 065

REACTIONS (2)
  - Bladder cancer [Fatal]
  - Ureteric cancer [Fatal]
